FAERS Safety Report 13099391 (Version 5)
Quarter: 2017Q2

REPORT INFORMATION
  Report Type: Report from Study
  Country: IT (occurrence: IT)
  Receive Date: 20170109
  Receipt Date: 20170404
  Transmission Date: 20170830
  Serious: Yes (Other)
  Sender: FDA-Public Use
  Company Number: IT-CELGENEUS-ITA-2016127943

PATIENT
  Age: 45 Year
  Sex: Male

DRUGS (5)
  1. DEXAMETHASONE. [Suspect]
     Active Substance: DEXAMETHASONE
     Indication: PLASMA CELL MYELOMA
     Route: 065
     Dates: start: 20151112, end: 20161111
  2. CARFILZOMIB [Suspect]
     Active Substance: CARFILZOMIB
     Route: 041
     Dates: start: 20161130
  3. REVLIMID [Suspect]
     Active Substance: LENALIDOMIDE
     Route: 048
     Dates: start: 20161130
  4. CARFILZOMIB [Suspect]
     Active Substance: CARFILZOMIB
     Indication: PLASMA CELL MYELOMA
     Dosage: NOT PROVIDED
     Route: 041
     Dates: start: 20151112, end: 20161111
  5. REVLIMID [Suspect]
     Active Substance: LENALIDOMIDE
     Indication: PLASMA CELL MYELOMA
     Dosage: 10MG
     Route: 048
     Dates: start: 20151112, end: 20161111

REACTIONS (1)
  - Pregnancy of partner [Not Recovered/Not Resolved]

NARRATIVE: CASE EVENT DATE: 20161219
